FAERS Safety Report 7370254-0 (Version None)
Quarter: 2011Q1

REPORT INFORMATION
  Report Type: 
  Country: None (occurrence: None)
  Receive Date: 20110323
  Receipt Date: 20110314
  Transmission Date: 20110831
  Serious: Yes (Other)
  Sender: FDA-Public Use
  Company Number: PHHY2011ES20588

PATIENT
  Age: 60 Year
  Sex: Male

DRUGS (3)
  1. STALEVO 100 [Suspect]
     Indication: PARKINSON'S DISEASE
     Dosage: 150MG/37.5MG/200 MG, 4 DF QD
     Route: 048
  2. AMANTADINE HCL [Concomitant]
     Indication: PARKINSON'S DISEASE
     Dosage: 100 MG, BID
     Dates: start: 20050101
  3. AZILECT [Concomitant]
     Indication: PARKINSON'S DISEASE
     Dosage: 1 MG, QD
     Dates: start: 20050101

REACTIONS (1)
  - PROSTATE CANCER [None]
